FAERS Safety Report 7040843-1 (Version None)
Quarter: 2010Q3

REPORT INFORMATION
  Report Type: 
  Country: None (occurrence: None)
  Receive Date: 20100929
  Receipt Date: 20100630
  Transmission Date: 20110219
  Serious: No
  Sender: FDA-Public Use
  Company Number: US-WYE-H15441110

PATIENT
  Age: 29 Year
  Sex: Female
  Weight: 90.8 kg

DRUGS (6)
  1. PRISTIQ [Suspect]
     Indication: ANXIETY
     Dosage: 50 MG 1X PER 1 DAY, ORAL 50 MX 1X PER 1 DAY, ORAL ; 100 MG 1X PER 1 DAY ,ORAL
     Route: 048
     Dates: start: 20100414, end: 20100507
  2. PRISTIQ [Suspect]
     Indication: DEPRESSION
     Dosage: 50 MG 1X PER 1 DAY, ORAL 50 MX 1X PER 1 DAY, ORAL ; 100 MG 1X PER 1 DAY ,ORAL
     Route: 048
     Dates: start: 20100414, end: 20100507
  3. PRISTIQ [Suspect]
     Indication: ANXIETY
     Dosage: 50 MG 1X PER 1 DAY, ORAL 50 MX 1X PER 1 DAY, ORAL ; 100 MG 1X PER 1 DAY ,ORAL
     Route: 048
     Dates: start: 20100508, end: 20100528
  4. PRISTIQ [Suspect]
     Indication: DEPRESSION
     Dosage: 50 MG 1X PER 1 DAY, ORAL 50 MX 1X PER 1 DAY, ORAL ; 100 MG 1X PER 1 DAY ,ORAL
     Route: 048
     Dates: start: 20100508, end: 20100528
  5. PRISTIQ [Suspect]
     Indication: ANXIETY
     Dosage: 50 MG 1X PER 1 DAY, ORAL 50 MX 1X PER 1 DAY, ORAL ; 100 MG 1X PER 1 DAY ,ORAL
     Route: 048
     Dates: start: 20100529, end: 20100531
  6. PRISTIQ [Suspect]
     Indication: DEPRESSION
     Dosage: 50 MG 1X PER 1 DAY, ORAL 50 MX 1X PER 1 DAY, ORAL ; 100 MG 1X PER 1 DAY ,ORAL
     Route: 048
     Dates: start: 20100529, end: 20100531

REACTIONS (6)
  - BLOOD PRESSURE INCREASED [None]
  - DYSPNOEA [None]
  - ECG P WAVE INVERTED [None]
  - HEART RATE INCREASED [None]
  - MYDRIASIS [None]
  - PALPITATIONS [None]
